FAERS Safety Report 13666423 (Version 1)
Quarter: 2017Q2

REPORT INFORMATION
  Report Type: Spontaneous
  Country: US (occurrence: US)
  Receive Date: 20170619
  Receipt Date: 20170619
  Transmission Date: 20170830
  Serious: Yes (Other)
  Sender: FDA-Public Use
  Company Number: US-ROCHE-1362043

PATIENT
  Sex: Female

DRUGS (11)
  1. DECADRON [Concomitant]
     Active Substance: DEXAMETHASONE
  2. PERCOCET [Concomitant]
     Active Substance: ACETAMINOPHEN\OXYCODONE HYDROCHLORIDE
  3. OMEPRAZOLE. [Concomitant]
     Active Substance: OMEPRAZOLE
  4. DIFLUCAN [Concomitant]
     Active Substance: FLUCONAZOLE
  5. PEPCID [Concomitant]
     Active Substance: FAMOTIDINE
  6. IBUPROFEN. [Concomitant]
     Active Substance: IBUPROFEN
  7. AMITRIPTYLINE [Concomitant]
     Active Substance: AMITRIPTYLINE
  8. ATIVAN [Concomitant]
     Active Substance: LORAZEPAM
  9. EXEMESTANE. [Concomitant]
     Active Substance: EXEMESTANE
  10. LOVENOX [Concomitant]
     Active Substance: ENOXAPARIN SODIUM
  11. XELODA [Suspect]
     Active Substance: CAPECITABINE
     Indication: BREAST CANCER
     Route: 048
     Dates: start: 20130515

REACTIONS (1)
  - Thrombosis [Unknown]
